FAERS Safety Report 4335589-4 (Version None)
Quarter: 2004Q2

REPORT INFORMATION
  Report Type: 
  Country: None (occurrence: None)
  Receive Date: 20040409
  Receipt Date: 20030411
  Transmission Date: 20050107
  Serious: Yes (Hospitalization, Other)
  Sender: FDA-Public Use
  Company Number: US-MERCK-0304USA01385

PATIENT
  Age: 75 Year
  Sex: Female
  Weight: 72 kg

DRUGS (6)
  1. PREMARIN [Concomitant]
     Route: 065
  2. LASIX [Concomitant]
     Route: 065
  3. PREVACID [Concomitant]
     Route: 048
  4. SYNTHROID [Concomitant]
     Route: 048
  5. POTASSIUM (UNSPECIFIED) [Concomitant]
     Route: 065
  6. VIOXX [Suspect]
     Indication: ARTHRITIS
     Route: 048
     Dates: start: 20000801, end: 20010101

REACTIONS (20)
  - BREAST CYST [None]
  - CARDIAC FAILURE CONGESTIVE [None]
  - CARDIAC MURMUR [None]
  - CORONARY ARTERY DISEASE [None]
  - CORONARY ARTERY OCCLUSION [None]
  - DYSPHAGIA [None]
  - DYSPNOEA [None]
  - ELECTROCARDIOGRAM ABNORMAL [None]
  - GASTRIC DISORDER [None]
  - GASTRITIS [None]
  - HYPERLIPIDAEMIA [None]
  - HYPERTENSION [None]
  - HYPOAESTHESIA [None]
  - ISCHAEMIA [None]
  - LOWER GASTROINTESTINAL HAEMORRHAGE [None]
  - LUNG NEOPLASM [None]
  - MYOCARDIAL INFARCTION [None]
  - NON-CARDIAC CHEST PAIN [None]
  - OESOPHAGEAL SPASM [None]
  - OXYGEN SATURATION DECREASED [None]
